FAERS Safety Report 11149008 (Version 2)
Quarter: 2015Q2

REPORT INFORMATION
  Report Type: Spontaneous
  Country: US (occurrence: US)
  Receive Date: 20150529
  Receipt Date: 20150617
  Transmission Date: 20150821
  Serious: Yes (Death, Other)
  Sender: FDA-Public Use
  Company Number: US-JNJFOC-20150519050

PATIENT
  Age: 54 Year
  Sex: Female
  Weight: 101 kg

DRUGS (1)
  1. IMBRUVICA [Suspect]
     Active Substance: IBRUTINIB
     Indication: CHRONIC LYMPHOCYTIC LEUKAEMIA
     Dates: start: 20140514, end: 201504

REACTIONS (4)
  - Multi-organ failure [Fatal]
  - Large intestine perforation [Not Recovered/Not Resolved]
  - Histiocytosis haematophagic [Recovering/Resolving]
  - Acute abdomen [Not Recovered/Not Resolved]

NARRATIVE: CASE EVENT DATE: 20140520
